FAERS Safety Report 8085875 (Version 2)
Quarter: 2013Q3

REPORT INFORMATION
  Report Type: Report from Study
  Country: MX (occurrence: MX)
  Receive Date: 20110811
  Receipt Date: 20130725
  Transmission Date: 20140515
  Serious: Yes (Other)
  Sender: FDA-Public Use
  Company Number: PHHY2011MX68894

PATIENT
  Age: 86 Year
  Sex: Male

DRUGS (4)
  1. CO-DIOVAN [Suspect]
     Indication: HYPERTENSION
     Dosage: 1 TABLET (160/12.5  MG) PER DAY
     Dates: start: 200907, end: 201106
  2. DIOVAN [Suspect]
     Dosage: 80 MG, UNK
  3. LASIX [Concomitant]
     Dosage: 1 DF, UNK
  4. ZYLOPRIM [Concomitant]
     Dosage: UNK UKN, UNK
     Dates: start: 201106

REACTIONS (2)
  - Cardiac disorder [Recovered/Resolved]
  - Heart rate irregular [Recovered/Resolved]
